FAERS Safety Report 9252401 (Version 3)
Quarter: 2014Q1

REPORT INFORMATION
  Report Type: Report from Study
  Country: IT (occurrence: IT)
  Receive Date: 20130424
  Receipt Date: 20140130
  Transmission Date: 20141002
  Serious: Yes (Death, Hospitalization, Other)
  Sender: FDA-Public Use
  Company Number: PHHY2013IT039955

PATIENT
  Age: 74 Year
  Sex: Male

DRUGS (4)
  1. CERTICAN [Suspect]
     Indication: PROPHYLAXIS AGAINST TRANSPLANT REJECTION
     Dosage: 0.5 MG / DAY, (0.25 + 0.25)
     Route: 048
     Dates: start: 20110118, end: 20110819
  2. SANDIMMUN NEORAL [Concomitant]
     Indication: PROPHYLAXIS AGAINST TRANSPLANT REJECTION
     Dosage: 30 MG, DAILY
     Dates: start: 20101123
  3. DELTACORTENE [Concomitant]
     Indication: PROPHYLAXIS AGAINST TRANSPLANT REJECTION
     Dosage: 7.5 MG, DAILY
     Dates: start: 20041227, end: 20110819
  4. DELTACORTENE [Concomitant]
     Dosage: 12.5 MG, DAILY
     Dates: start: 20110819

REACTIONS (9)
  - Renal failure acute [Fatal]
  - Lung infection pseudomonal [Fatal]
  - Pleural effusion [Fatal]
  - Sepsis [Fatal]
  - Cerebrovascular accident [Unknown]
  - Congestive cardiomyopathy [Unknown]
  - Cerebral haemorrhage [Unknown]
  - Renal failure chronic [Unknown]
  - Bronchopneumonia [Unknown]
